FAERS Safety Report 10862281 (Version 2)
Quarter: 2015Q1

REPORT INFORMATION
  Report Type: Spontaneous
  Country: CH (occurrence: CH)
  Receive Date: 20150224
  Receipt Date: 20150225
  Transmission Date: 20150721
  Serious: Yes (Hospitalization)
  Sender: FDA-Public Use
  Company Number: PHHY2015CH020612

PATIENT
  Age: 79 Year
  Sex: Female

DRUGS (7)
  1. PREDNISON [Interacting]
     Active Substance: PREDNISONE
     Indication: RENAL TRANSPLANT
     Dosage: 5 MG, Q48H
     Route: 065
  2. CICLOSPORIN [Interacting]
     Active Substance: CYCLOSPORINE
     Indication: IMMUNOSUPPRESSION
  3. AZATHIOPRINE. [Interacting]
     Active Substance: AZATHIOPRINE
     Indication: IMMUNOSUPPRESSION
  4. AZATHIOPRINE. [Interacting]
     Active Substance: AZATHIOPRINE
     Indication: RENAL TRANSPLANT
     Dosage: 75 MG, QD
     Route: 065
  5. PREDNISON [Interacting]
     Active Substance: PREDNISONE
     Indication: IMMUNOSUPPRESSION
  6. ALLOPURINOL. [Interacting]
     Active Substance: ALLOPURINOL
     Indication: GOUT
     Dosage: 100 MG, QD
     Route: 065
  7. CICLOSPORIN [Suspect]
     Active Substance: CYCLOSPORINE
     Indication: RENAL TRANSPLANT
     Dosage: 75 MG, QD
     Route: 065

REACTIONS (6)
  - Drug interaction [Recovered/Resolved]
  - Thrombocytopenia [Recovered/Resolved]
  - Epistaxis [Recovered/Resolved]
  - Renal impairment [Recovered/Resolved]
  - Petechiae [Recovered/Resolved]
  - Neutropenia [Recovered/Resolved]
